FAERS Safety Report 7118807-9 (Version None)
Quarter: 2010Q4

REPORT INFORMATION
  Report Type: 
  Country: None (occurrence: None)
  Receive Date: 20101123
  Receipt Date: 20101015
  Transmission Date: 20110411
  Serious: No
  Sender: FDA-Public Use
  Company Number: US-KINGPHARMUSA00001-K201001284

PATIENT
  Age: 55 Year
  Sex: Male
  Weight: 88.435 kg

DRUGS (18)
  1. FLECTOR [Suspect]
     Indication: PAIN IN EXTREMITY
     Dosage: 1/4-1/5 PATCH QD IN AM X 12 HOURS
     Route: 061
     Dates: start: 20100929, end: 20101004
  2. FLECTOR [Suspect]
     Indication: BONE DISORDER
     Dosage: 1/4-1/5 PATCH QD IN AM X 12 HOURS
     Route: 061
     Dates: start: 20101007, end: 20101013
  3. FLECTOR [Suspect]
     Dosage: 1/4-1/5 PATCH QD IN AM X 12 HOURS
     Route: 061
     Dates: start: 20101015
  4. PREDNISONE [Concomitant]
     Dosage: 2 MG, QHS
  5. PREDNISONE [Concomitant]
     Dosage: 3 MG, QHS
  6. ASA [Concomitant]
     Dosage: 81 MG, UNK
  7. LEVOTHYROXINE SODIUM [Concomitant]
     Dosage: 88 MCG, UNK
  8. PREVACID [Concomitant]
  9. ATENOLOL [Concomitant]
  10. DIOVAN [Concomitant]
  11. FOLIC ACID [Concomitant]
  12. TRICOR [Concomitant]
  13. TRIAMTERENE AND HYDROCHLOROTHIAZIDE [Concomitant]
  14. AMLODIPINE [Concomitant]
  15. PLAVIX [Concomitant]
  16. INSULIN [Concomitant]
  17. HUMULIN R [Concomitant]
  18. ROSUVASTATIN CALCIUM [Concomitant]

REACTIONS (6)
  - FATIGUE [None]
  - INFLUENZA LIKE ILLNESS [None]
  - LETHARGY [None]
  - MALAISE [None]
  - PAIN [None]
  - URTICARIA [None]
